FAERS Safety Report 8905261 (Version 1)
Quarter: 2012Q4

REPORT INFORMATION
  Report Type: 
  Country: GB (occurrence: GB)
  Receive Date: 20121109
  Receipt Date: 20121109
  Transmission Date: 20130627
  Serious: Yes (Death)
  Sender: FDA-Public Use
  Company Number: GB-WATSON-2012-18987

PATIENT
  Age: 69 Year
  Sex: Female
  Weight: 80 kg

DRUGS (5)
  1. DIAZEPAM (UNKNOWN) [Suspect]
     Indication: PRODUCT USED FOR UNKNOWN INDICATION
     Route: 065
  2. CITALOPRAM HYDROBROMIDE (UNKNOWN) [Suspect]
     Indication: PRODUCT USED FOR UNKNOWN INDICATION
     Dosage: 30mg Tapered to c 10mg. Drug was stopped abruptly
     Route: 065
  3. REMINYL [Suspect]
     Indication: PRODUCT USED FOR UNKNOWN INDICATION
     Dosage: 16mg Reminly was abruptly stopped due to overdosing
     Route: 065
  4. ATIVAN [Suspect]
     Indication: PRODUCT USED FOR UNKNOWN INDICATION
     Route: 065
  5. NITRAZEPAM [Suspect]
     Indication: PRODUCT USED FOR UNKNOWN INDICATION
     Dosage: 5mg
     Route: 065

REACTIONS (4)
  - Drug interaction [Fatal]
  - Withdrawal syndrome [Fatal]
  - Accidental overdose [Fatal]
  - Catatonia [Fatal]
